FAERS Safety Report 9816576 (Version 1)
Quarter: 2014Q1

REPORT INFORMATION
  Report Type: Spontaneous
  Country: US (occurrence: US)
  Receive Date: 20140114
  Receipt Date: 20140114
  Transmission Date: 20141002
  Serious: Yes (Other)
  Sender: FDA-Public Use
  Company Number: US-MPIJNJ-2014MPI000042

PATIENT
  Age: 55 Year
  Sex: Female

DRUGS (21)
  1. VELCADE [Suspect]
     Dosage: UNK
     Dates: start: 20120612, end: 20121005
  2. VELCADE [Suspect]
     Dosage: UNK
  3. REVLIMID [Suspect]
     Indication: PLASMA CELL MYELOMA
     Dosage: 5 MG, UNK
     Route: 048
     Dates: start: 20130831
  4. REVLIMID [Suspect]
     Dosage: 10 MG, QD
     Dates: start: 201302, end: 201304
  5. REVLIMID [Suspect]
     Dosage: 10 MG, QD
     Dates: start: 2013, end: 20131009
  6. REVLIMID [Suspect]
     Dosage: 10 MG, QD
     Dates: start: 2013, end: 20131210
  7. LEVOTHYROXINE SODIUM [Concomitant]
     Dosage: UNK
     Route: 065
  8. MAGNESIUM [Concomitant]
     Dosage: UNK
     Route: 065
  9. OMEPRAZOLE [Concomitant]
     Dosage: UNK
     Route: 065
  10. ACYCLOVIR                          /00587301/ [Concomitant]
     Dosage: UNK
     Route: 065
  11. SODIUM BICARBONATE [Concomitant]
     Dosage: UNK
     Route: 065
  12. BENZONATATE [Concomitant]
     Dosage: UNK
     Route: 065
  13. DEXAMETHASONE [Concomitant]
     Dosage: UNK
     Route: 065
  14. ALLOPURINOL [Concomitant]
     Route: 065
  15. AMBIEN [Concomitant]
     Route: 065
  16. BACTRIN [Concomitant]
     Dosage: UNK
     Route: 065
     Dates: start: 20130907, end: 20130917
  17. FLUCONAZOLE [Concomitant]
     Route: 065
  18. LIPITOR [Concomitant]
     Route: 065
  19. LISINOPRIL [Concomitant]
     Route: 065
  20. MIRALAX                            /00754501/ [Concomitant]
     Route: 065
  21. PROCRIT                            /00909301/ [Concomitant]
     Dosage: UNK
     Route: 065
     Dates: start: 20130727

REACTIONS (7)
  - Clostridium difficile infection [Recovered/Resolved]
  - Neutropenia [None]
  - Urinary tract infection [Recovered/Resolved]
  - Eye infection [None]
  - Ear infection [Recovered/Resolved]
  - Upper respiratory tract infection [Recovered/Resolved]
  - White blood cell count decreased [Recovered/Resolved]
